FAERS Safety Report 9834627 (Version 4)
Quarter: 2014Q2

REPORT INFORMATION
  Report Type: Spontaneous
  Country: IT (occurrence: IT)
  Receive Date: 20140122
  Receipt Date: 20140414
  Transmission Date: 20141212
  Serious: Yes (Hospitalization)
  Sender: FDA-Public Use
  Company Number: IT-ABBVIE-14P-083-1193216-00

PATIENT
  Age: 40 Year
  Sex: Female

DRUGS (7)
  1. DEPAKINE CHRONO [Suspect]
     Indication: DRUG ABUSE
     Dosage: EXTENDED RELEASE
     Route: 048
     Dates: start: 20131216, end: 20131216
  2. PAROXETINE [Suspect]
     Indication: DRUG ABUSE
     Route: 048
     Dates: start: 20131216, end: 20131216
  3. PAROXETINE [Suspect]
     Indication: DEPRESSION
  4. EN [Suspect]
     Indication: DRUG ABUSE
     Route: 048
     Dates: start: 20131216, end: 20131216
  5. EN [Suspect]
     Indication: SLEEP DISORDER
  6. ABILIFY [Suspect]
     Indication: DRUG ABUSE
     Route: 048
     Dates: start: 20131216, end: 20131216
  7. ALCOHOL [Suspect]
     Indication: PRODUCT USED FOR UNKNOWN INDICATION
     Dates: start: 20131216, end: 20131216

REACTIONS (7)
  - Drug abuse [Recovering/Resolving]
  - Faecal incontinence [Recovering/Resolving]
  - Somnolence [Recovering/Resolving]
  - Abdominal pain [Recovering/Resolving]
  - Alcohol abuse [Unknown]
  - Sopor [Unknown]
  - Urinary incontinence [Unknown]
